FAERS Safety Report 4984066-6 (Version None)
Quarter: 2006Q1

REPORT INFORMATION
  Report Type: 
  Country: None (occurrence: None)
  Receive Date: 20060302
  Receipt Date: 20060127
  Transmission Date: 20060701
  Serious: No
  Sender: FDA-Public Use
  Company Number: S06-USA-00306-01

PATIENT
  Age: 47 Year
  Sex: Female

DRUGS (3)
  1. CAMPRAL [Suspect]
     Indication: ALCOHOLISM
     Dosage: 666 MG TID PO
     Route: 048
     Dates: start: 20050401, end: 20050601
  2. LEXAPRO [Suspect]
     Indication: DEPRESSION
     Dosage: 20 MG QD PO
     Route: 048
     Dates: start: 20050101
  3. LITHIUM [Concomitant]

REACTIONS (1)
  - ARTHRALGIA [None]
